FAERS Safety Report 8291189 (Version 5)
Quarter: 2013Q2

REPORT INFORMATION
  Report Type: Spontaneous
  Country: US (occurrence: None)
  Receive Date: 20111122
  Receipt Date: 20120426
  Transmission Date: 20140414
  Serious: No
  Sender: FDA-Public Use
  Company Number: PHHY2011US16755

PATIENT
  Age: 37 Year
  Sex: Female

DRUGS (5)
  1. GILENYA [Suspect]
     Indication: MULTIPLE SCLEROSIS
     Route: 048
     Dates: start: 20110218
  2. BUSPIRON (HYOSCINE BUTYLBROMIDE, METAMIZOLE SODIUM MONOHYDRATE) [Concomitant]
  3. FLUTICASONE (FLUTICASONE) [Concomitant]
  4. OMEPRAZOL (OMEPRAZOLE) [Concomitant]
  5. LEXAPRO (ESCITALOPRAM OXALATE) [Concomitant]

REACTIONS (8)
  - LYMPHADENOPATHY [None]
  - DYSPEPSIA [None]
  - ABDOMINAL DISCOMFORT [None]
  - Oropharyngeal pain [None]
  - Sinusitis [None]
  - Headache [None]
  - Neck pain [None]
  - Sinus congestion [None]
